FAERS Safety Report 6339458-X (Version None)
Quarter: 2009Q3

REPORT INFORMATION
  Report Type: 
  Country: None (occurrence: None)
  Receive Date: 20090903
  Receipt Date: 20090824
  Transmission Date: 20100115
  Serious: Yes (Hospitalization)
  Sender: FDA-Public Use
  Company Number: JP-ROCHE-644373

PATIENT
  Sex: Male
  Weight: 57 kg

DRUGS (7)
  1. XELODA [Suspect]
     Indication: COLON CANCER
     Dosage: 2 WEEKS ADMINISTRATION FOLLOWED BY 1 WEEK REST.
     Route: 048
     Dates: start: 20090427, end: 20090611
  2. XELODA [Suspect]
     Route: 048
     Dates: start: 20090624, end: 20090701
  3. PYDOXAL [Concomitant]
     Route: 048
     Dates: start: 20090427, end: 20090611
  4. PROTECADIN [Concomitant]
     Route: 048
     Dates: start: 20090427, end: 20090624
  5. ZITHROMAX [Concomitant]
     Route: 048
  6. HARNAL [Concomitant]
     Route: 048
  7. ALOSENN [Concomitant]
     Route: 048
     Dates: start: 20090511

REACTIONS (3)
  - DECREASED APPETITE [None]
  - DIARRHOEA [None]
  - INTERSTITIAL LUNG DISEASE [None]
